FAERS Safety Report 9054450 (Version 1)
Quarter: 2013Q1

REPORT INFORMATION
  Report Type: Spontaneous
  Country: US (occurrence: US)
  Receive Date: 20130208
  Receipt Date: 20130208
  Transmission Date: 20140127
  Serious: No
  Sender: FDA-Public Use
  Company Number: US-GLAXOSMITHKLINE-A0974975A

PATIENT
  Age: 51 Year
  Sex: Male

DRUGS (3)
  1. PAXIL [Suspect]
     Indication: BRAIN INJURY
     Route: 048
  2. GEODON [Concomitant]
  3. UNSPECIFIED MEDICATION [Concomitant]
     Indication: HEPATITIS B

REACTIONS (5)
  - Abnormal behaviour [Unknown]
  - Anger [Unknown]
  - Feeling abnormal [Unknown]
  - Impulsive behaviour [Unknown]
  - Drug ineffective [Unknown]
